FAERS Safety Report 9296325 (Version 1)
Quarter: 2013Q2

REPORT INFORMATION
  Report Type: Report from Study
  Country: VE (occurrence: VE)
  Receive Date: 20130517
  Receipt Date: 20130517
  Transmission Date: 20140414
  Serious: Yes (Death, Hospitalization, Other)
  Sender: FDA-Public Use
  Company Number: VE-ABBOTT-13P-178-1091099-00

PATIENT
  Age: 67 Year
  Sex: Female
  Weight: 112 kg

DRUGS (3)
  1. HUMIRA [Suspect]
     Indication: RHEUMATOID ARTHRITIS
     Dates: start: 20060601, end: 2012
  2. ZIAC [Concomitant]
     Indication: HYPERTENSION
     Route: 048
     Dates: start: 2005
  3. LOSARTAN [Concomitant]
     Indication: HYPERTENSION
     Route: 048
     Dates: start: 2005

REACTIONS (2)
  - Respiratory arrest [Fatal]
  - Pneumonia [Unknown]
